FAERS Safety Report 20016817 (Version 1)
Quarter: 2021Q4

REPORT INFORMATION
  Report Type: Spontaneous
  Country: US (occurrence: None)
  Receive Date: 20211105
  Receipt Date: 20211105
  Transmission Date: 20220304
  Serious: Yes (Hospitalization)
  Sender: FDA-Public Use
  Company Number: None

PATIENT
  Age: 69 Year
  Sex: Male
  Weight: 112.5 kg

DRUGS (1)
  1. OZEMPIC [Suspect]
     Active Substance: SEMAGLUTIDE
     Indication: Blood glucose increased
     Dosage: FREQUENCY : WEEKLY;?
     Route: 058

REACTIONS (5)
  - Intestinal obstruction [None]
  - Diarrhoea [None]
  - Dialysis [None]
  - Intentional product use issue [None]
  - Renal function test abnormal [None]

NARRATIVE: CASE EVENT DATE: 20210902
